FAERS Safety Report 8732366 (Version 2)
Quarter: 2012Q4

REPORT INFORMATION
  Report Type: 
  Country: FR (occurrence: FR)
  Receive Date: 20120820
  Receipt Date: 20121221
  Transmission Date: 20130627
  Serious: Yes (Other)
  Sender: FDA-Public Use
  Company Number: FR-GLAXOSMITHKLINE-B0821973A

PATIENT
  Age: 56 Year
  Sex: Female

DRUGS (6)
  1. AZANTAC [Suspect]
     Indication: PREMEDICATION
     Route: 042
     Dates: start: 20120719, end: 20120719
  2. DEXAMETHASONE [Suspect]
     Indication: PREMEDICATION
     Dosage: 8MG Per day
     Route: 042
     Dates: start: 20120719, end: 20120719
  3. POLARAMINE [Concomitant]
     Indication: PREMEDICATION
     Dates: start: 20120719, end: 20120719
  4. EPIRUBICINE [Concomitant]
     Indication: CHEMOTHERAPY
     Dates: start: 20120516
  5. CYCLOPHOSPHAMIDE [Concomitant]
     Indication: CHEMOTHERAPY
     Dates: start: 20120516
  6. 5 FLUOROURACILE [Concomitant]
     Indication: CHEMOTHERAPY
     Dates: start: 20120516

REACTIONS (3)
  - Rash [Recovered/Resolved]
  - Pruritus [Recovered/Resolved]
  - Chest discomfort [Recovered/Resolved]
